FAERS Safety Report 25481044 (Version 1)
Quarter: 2025Q2

REPORT INFORMATION
  Report Type: Spontaneous
  Country: US (occurrence: US)
  Receive Date: 20250625
  Receipt Date: 20250625
  Transmission Date: 20250717
  Serious: No
  Sender: ABBVIE
  Company Number: US-ABBVIE-6336506

PATIENT
  Sex: Female

DRUGS (1)
  1. LILETTA [Suspect]
     Active Substance: LEVONORGESTREL
     Indication: Product used for unknown indication
     Route: 015

REACTIONS (4)
  - Maternal exposure during pregnancy [Unknown]
  - Ovarian cyst [Unknown]
  - Drug ineffective [Unknown]
  - Pregnancy with contraceptive device [Unknown]
